FAERS Safety Report 17755140 (Version 1)
Quarter: 2020Q2

REPORT INFORMATION
  Report Type: Spontaneous
  Country: US (occurrence: US)
  Receive Date: 20200507
  Receipt Date: 20200507
  Transmission Date: 20200714
  Serious: Yes (Life-Threatening, Other)
  Sender: FDA-Public Use
  Company Number: US-HIKMA PHARMACEUTICALS USA INC.-US-H14001-20-02092

PATIENT
  Sex: Female

DRUGS (2)
  1. MORPHINE [Concomitant]
     Active Substance: MORPHINE
     Indication: PRODUCT USED FOR UNKNOWN INDICATION
     Route: 065
  2. METHADONE [Suspect]
     Active Substance: METHADONE HYDROCHLORIDE
     Indication: PRODUCT USED FOR UNKNOWN INDICATION
     Route: 065

REACTIONS (14)
  - Irritable bowel syndrome [Unknown]
  - Pain [Unknown]
  - Tooth loss [Unknown]
  - Dry mouth [Unknown]
  - Coma [Unknown]
  - Monoplegia [Unknown]
  - Mass [Unknown]
  - Overdose [Unknown]
  - Intellectual disability [Unknown]
  - Complex regional pain syndrome [Unknown]
  - Gait inability [Unknown]
  - Dependence [Unknown]
  - Incontinence [Unknown]
  - Near death experience [Unknown]
